FAERS Safety Report 8794240 (Version 1)
Quarter: 2012Q4

REPORT INFORMATION
  Report Type: 
  Country: JP (occurrence: JP)
  Receive Date: 20120918
  Receipt Date: 20120918
  Transmission Date: 20130627
  Serious: Yes (Hospitalization)
  Sender: FDA-Public Use
  Company Number: JP-AMGEN-JPNSP2012045210

PATIENT
  Age: 69 Year
  Sex: Female

DRUGS (6)
  1. ENBREL [Suspect]
     Indication: RHEUMATOID ARTHRITIS
     Dosage: 50 mg, weekly
     Route: 058
     Dates: start: 200811
  2. ENBREL [Suspect]
     Dosage: 25 mg, 2x/week
     Route: 058
     Dates: start: 20080906
  3. BENET [Concomitant]
     Indication: OSTEOPOROSIS
     Dosage: 17.5 mg, weekly
     Route: 048
     Dates: start: 20081009
  4. SUVENYL [Concomitant]
     Indication: ARTHRALGIA
     Dosage: UNK
     Route: 014
     Dates: start: 20080207
  5. VOLTAREN                           /00372302/ [Concomitant]
     Indication: ARTHRALGIA
     Dosage: 50 mg, as needed
     Route: 054
     Dates: start: 20080111
  6. LOXONIN [Concomitant]
     Indication: ARTHRALGIA
     Dosage: UNK
     Route: 062

REACTIONS (3)
  - Joint dislocation [Unknown]
  - Immune system disorder [Unknown]
  - Arthritis bacterial [Recovered/Resolved]
